FAERS Safety Report 10434908 (Version 1)
Quarter: 2014Q3

REPORT INFORMATION
  Report Type: Spontaneous
  Country: US (occurrence: US)
  Receive Date: 20140906
  Receipt Date: 20140906
  Transmission Date: 20150326
  Serious: No
  Sender: FDA-Public Use
  Company Number: US-009507513-1409USA001480

PATIENT
  Sex: Female

DRUGS (2)
  1. CLARINEX [Suspect]
     Active Substance: DESLORATADINE
     Indication: ASTHMA
  2. CLARINEX [Suspect]
     Active Substance: DESLORATADINE
     Indication: HYPERSENSITIVITY
     Dosage: 5 MG, UNK
     Route: 048
     Dates: start: 2004

REACTIONS (3)
  - Drug dose omission [Unknown]
  - Asthma [Not Recovered/Not Resolved]
  - Hypersensitivity [Not Recovered/Not Resolved]
